FAERS Safety Report 8225080-7 (Version None)
Quarter: 2012Q1

REPORT INFORMATION
  Report Type: 
  Country: None (occurrence: None)
  Receive Date: 20120321
  Receipt Date: 20120319
  Transmission Date: 20120608
  Serious: Yes (Life-Threatening, Hospitalization, Other)
  Sender: FDA-Public Use
  Company Number: US-ROXANE LABORATORIES, INC.-2012-RO-00883RO

PATIENT
  Sex: Female
  Weight: 88 kg

DRUGS (4)
  1. METHADONE HCL [Suspect]
     Indication: PAIN
  2. REBIF [Suspect]
     Route: 058
     Dates: start: 20111020
  3. RITALIN [Suspect]
     Indication: DEPRESSED LEVEL OF CONSCIOUSNESS
  4. KLONOPIN [Concomitant]
     Indication: SLEEP DISORDER

REACTIONS (9)
  - TREMOR [None]
  - LOSS OF CONSCIOUSNESS [None]
  - RESPIRATORY ARREST [None]
  - MUSCLE CONTRACTURE [None]
  - MUSCULOSKELETAL STIFFNESS [None]
  - COLD SWEAT [None]
  - FEELING HOT [None]
  - VENTRICULAR TACHYCARDIA [None]
  - HYPERHIDROSIS [None]
